FAERS Safety Report 9416703 (Version 2)
Quarter: 2013Q3

REPORT INFORMATION
  Report Type: Spontaneous
  Country: PE (occurrence: PE)
  Receive Date: 20130724
  Receipt Date: 20130805
  Transmission Date: 20140515
  Serious: Yes (Hospitalization)
  Sender: FDA-Public Use
  Company Number: PE-PFIZER INC-2013214598

PATIENT
  Age: 60 Year
  Sex: Female

DRUGS (3)
  1. XANAX XR [Suspect]
     Indication: ANXIETY
     Dosage: 1 MG, UNK
     Route: 048
     Dates: start: 2010, end: 20130620
  2. XANAX XR [Suspect]
     Dosage: 1 MG, 1X/DAY
     Route: 048
     Dates: start: 2013
  3. LOSARTAN [Concomitant]
     Indication: HYPERTENSION
     Dosage: UNK
     Route: 048
     Dates: start: 2012

REACTIONS (1)
  - Bipolar disorder [Recovering/Resolving]
